FAERS Safety Report 14847762 (Version 1)
Quarter: 2018Q2

REPORT INFORMATION
  Report Type: Spontaneous
  Country: US (occurrence: US)
  Receive Date: 20180504
  Receipt Date: 20180504
  Transmission Date: 20180711
  Serious: Yes (Other)
  Sender: FDA-Public Use
  Company Number: PHHY2018US075190

PATIENT

DRUGS (1)
  1. GRANULOCYTE COLONY STIMULATING FACTOR [Suspect]
     Active Substance: GRANULOCYTE COLONY-STIMULATING FACTOR NOS
     Indication: CORONARY ARTERY DISEASE
     Dosage: 10 UG/KG, QD
     Route: 065

REACTIONS (1)
  - Myocardial infarction [Unknown]
